FAERS Safety Report 6147325-X (Version None)
Quarter: 2009Q2

REPORT INFORMATION
  Report Type: 
  Country: None (occurrence: None)
  Receive Date: 20090408
  Receipt Date: 20090330
  Transmission Date: 20091009
  Serious: Yes (Other)
  Sender: FDA-Public Use
  Company Number: PHHY2009BR12490

PATIENT
  Age: 30 Year
  Sex: Female
  Weight: 97 kg

DRUGS (6)
  1. TRILEPTAL [Suspect]
     Indication: AGITATION
     Dosage: 600 MG, BID
     Route: 048
     Dates: start: 20080901
  2. TRILEPTAL [Suspect]
     Dosage: 300 MG, BID
     Route: 048
     Dates: start: 20090331
  3. HIDANTAL [Concomitant]
     Indication: AGITATION
     Dosage: 3 AND 1/2 CAPSULES AT NIGHT
     Route: 048
     Dates: start: 19990101
  4. AMPICIPRITIL [Concomitant]
     Indication: AGITATION
     Dosage: 100 MG, QD
     Route: 048
     Dates: start: 20040101
  5. PURAN T4 [Concomitant]
     Dosage: 75 UG, QD
     Route: 048
     Dates: start: 20060101
  6. ROSUVASTATIN CALCIUM [Concomitant]
     Dosage: 10 MG, QD
     Route: 048
     Dates: start: 20060101

REACTIONS (3)
  - BLISTER [None]
  - BURNING SENSATION [None]
  - RASH MACULAR [None]
